FAERS Safety Report 10780096 (Version 1)
Quarter: 2015Q1

REPORT INFORMATION
  Report Type: Spontaneous
  Country: US (occurrence: US)
  Receive Date: 20150210
  Receipt Date: 20150210
  Transmission Date: 20150721
  Serious: No
  Sender: FDA-Public Use
  Company Number: US-GLAXOSMITHKLINE-A0993283A

PATIENT

DRUGS (2)
  1. ISRADIPINE. [Suspect]
     Active Substance: ISRADIPINE
     Indication: BLOOD PRESSURE
  2. DYNACIRC CR [Suspect]
     Active Substance: ISRADIPINE
     Indication: HYPERTENSION
     Route: 048

REACTIONS (2)
  - Peripheral swelling [Unknown]
  - Drug ineffective [Unknown]
